FAERS Safety Report 16656206 (Version 3)
Quarter: 2024Q2

REPORT INFORMATION
  Report Type: Report from Study
  Country: ES (occurrence: ES)
  Receive Date: 20190801
  Receipt Date: 20240604
  Transmission Date: 20240717
  Serious: No
  Sender: FDA-Public Use
  Company Number: ES-JNJFOC-20190733104

PATIENT
  Age: 57 Year
  Sex: Male

DRUGS (2)
  1. SIMPONI [Suspect]
     Active Substance: GOLIMUMAB
     Indication: Colitis ulcerative
     Route: 058
     Dates: start: 20180405, end: 20190515
  2. SIMPONI [Suspect]
     Active Substance: GOLIMUMAB
     Route: 058
     Dates: start: 20190515, end: 20210223

REACTIONS (1)
  - Adenocarcinoma of colon [Recovered/Resolved]

NARRATIVE: CASE EVENT DATE: 20190524
